FAERS Safety Report 6078535-8 (Version None)
Quarter: 2009Q1

REPORT INFORMATION
  Report Type: 
  Country: None (occurrence: None)
  Receive Date: 20090212
  Receipt Date: 20090212
  Transmission Date: 20090719
  Serious: No
  Sender: FDA-Public Use
  Company Number: None

PATIENT
  Sex: Female
  Weight: 83.9154 kg

DRUGS (2)
  1. YAZ [Suspect]
     Indication: CONTRACEPTION
     Dosage: DAILY PO
     Route: 048
     Dates: start: 20081111, end: 20090209
  2. YAZ [Suspect]
     Indication: MUSCLE SPASMS
     Dosage: DAILY PO
     Route: 048
     Dates: start: 20081111, end: 20090209

REACTIONS (4)
  - BACK PAIN [None]
  - DYSMENORRHOEA [None]
  - HAEMORRHAGE [None]
  - HEADACHE [None]
